FAERS Safety Report 5474156-6 (Version None)
Quarter: 2007Q3

REPORT INFORMATION
  Report Type: 
  Country: None (occurrence: None)
  Receive Date: 20070830
  Receipt Date: 20070123
  Transmission Date: 20080115
  Serious: Yes (Other)
  Sender: FDA-Public Use
  Company Number: 235042

PATIENT
  Age: 57 Year
  Sex: Female

DRUGS (9)
  1. XOLAIR [Suspect]
     Indication: ASTHMA
     Dosage: 225 MG, Q2W, SUBCUTANEOUS
     Route: 058
     Dates: start: 20050609
  2. BENADRYL [Suspect]
  3. ALBUTEROL (ALBUTEROL/ ALBUTEROL SULFATE) [Concomitant]
  4. EPINEPHRINE [Concomitant]
  5. ADVAIR DISKUS 100/50 [Concomitant]
  6. FLONASE [Concomitant]
  7. ASTELIN [Concomitant]
  8. PROTONIX [Concomitant]
  9. ALLEGRA-D (FEXOFENADINE HYDROCHLORIDE, PSEUDOEPHEDRINE HYDROCHLORIDE) [Concomitant]

REACTIONS (2)
  - ANAPHYLACTIC REACTION [None]
  - PRURITUS [None]
